FAERS Safety Report 4868943-2 (Version None)
Quarter: 2005Q4

REPORT INFORMATION
  Report Type: 
  Country: None (occurrence: None)
  Receive Date: 20051223
  Receipt Date: 20051215
  Transmission Date: 20060501
  Serious: Yes (Disabling)
  Sender: FDA-Public Use
  Company Number: GXKR2005CA02144

PATIENT
  Sex: Female

DRUGS (2)
  1. KETOROLAC TROMETHAMINE [Suspect]
     Indication: PAIN
     Dosage: 30 MG, ONCE/SINGLE, INTRAMUSCULAR
     Route: 030
     Dates: start: 20020101, end: 20020101
  2. MORPHINE [Concomitant]

REACTIONS (3)
  - BLOOD CREATINE ABNORMAL [None]
  - POST PROCEDURAL COMPLICATION [None]
  - RENAL TUBULAR NECROSIS [None]
